FAERS Safety Report 11938414 (Version 1)
Quarter: 2016Q1

REPORT INFORMATION
  Report Type: Spontaneous
  Country: US (occurrence: US)
  Receive Date: 20160122
  Receipt Date: 20160122
  Transmission Date: 20160526
  Serious: No
  Sender: FDA-Public Use
  Company Number: US-009507513-1601USA003501

PATIENT
  Sex: Female

DRUGS (1)
  1. DULERA [Suspect]
     Active Substance: FORMOTEROL FUMARATE DIHYDRATE\MOMETASONE FUROATE
     Indication: ASTHMA
     Dosage: 200/5 MCG, UNSPECIFIED FREQUENCY
     Route: 055

REACTIONS (3)
  - Underdose [Unknown]
  - Product quality issue [Not Recovered/Not Resolved]
  - Dyspnoea [Recovered/Resolved]
